FAERS Safety Report 7884880-3 (Version None)
Quarter: 2011Q4

REPORT INFORMATION
  Report Type: 
  Country: None (occurrence: None)
  Receive Date: 20111102
  Receipt Date: 20111026
  Transmission Date: 20120403
  Serious: Yes (Other)
  Sender: FDA-Public Use
  Company Number: PHHY2011JP95727

PATIENT
  Sex: Female

DRUGS (3)
  1. CLOZARIL [Suspect]
     Dosage: 500 MG
     Route: 048
  2. CLOZARIL [Suspect]
     Dosage: 350 MG
     Route: 048
     Dates: start: 20101006
  3. CLOZARIL [Suspect]
     Dosage: 350 MG
     Route: 048

REACTIONS (1)
  - ELECTROENCEPHALOGRAM ABNORMAL [None]
